FAERS Safety Report 14246051 (Version 2)
Quarter: 2017Q4

REPORT INFORMATION
  Report Type: Report from Study
  Country: None (occurrence: US)
  Receive Date: 20171204
  Receipt Date: 20171215
  Transmission Date: 20180321
  Serious: Yes (Hospitalization, Other)
  Sender: FDA-Public Use
  Company Number: US-ABBVIE-17K-163-2176163-00

PATIENT
  Age: 58 Year
  Sex: Male
  Weight: 86.26 kg

DRUGS (6)
  1. IMURAN [Suspect]
     Active Substance: AZATHIOPRINE
     Indication: CROHN^S DISEASE
     Route: 065
  2. HUMIRA [Suspect]
     Active Substance: ADALIMUMAB
     Route: 058
     Dates: start: 201709
  3. IMURAN [Suspect]
     Active Substance: AZATHIOPRINE
     Dosage: DECREASED BACK TO PREVIOUS DOSE IN 2016
     Route: 065
  4. HUMIRA [Suspect]
     Active Substance: ADALIMUMAB
     Indication: CROHN^S DISEASE
     Route: 058
     Dates: start: 201503, end: 201709
  5. IMURAN [Suspect]
     Active Substance: AZATHIOPRINE
     Dosage: INCREASED PRIOR TO EXPERIENCING KIDNEY STONE IN 2016
     Route: 065
  6. CENTRUM SILVER [Concomitant]
     Active Substance: MINERALS\VITAMINS
     Indication: VITAMIN SUPPLEMENTATION

REACTIONS (11)
  - Procedural haemorrhage [Unknown]
  - Loss of consciousness [Recovered/Resolved]
  - Drug level decreased [Unknown]
  - Gastrointestinal inflammation [Recovering/Resolving]
  - Depression [Recovered/Resolved]
  - Rectal haemorrhage [Recovered/Resolved]
  - Postoperative adhesion [Unknown]
  - Bladder obstruction [Recovered/Resolved]
  - Blood urine present [Recovered/Resolved]
  - Basal cell carcinoma [Recovered/Resolved]
  - Nephrolithiasis [Recovered/Resolved]

NARRATIVE: CASE EVENT DATE: 2015
